FAERS Safety Report 6753816-0 (Version None)
Quarter: 2010Q2

REPORT INFORMATION
  Report Type: 
  Country: None (occurrence: None)
  Receive Date: 20100603
  Receipt Date: 20100526
  Transmission Date: 20101027
  Serious: Yes (Hospitalization)
  Sender: FDA-Public Use
  Company Number: US-ASTRAZENECA-2010SE24404

PATIENT
  Age: 54 Year
  Sex: Female
  Weight: 81.6 kg

DRUGS (5)
  1. NEXIUM [Suspect]
     Indication: GASTROOESOPHAGEAL REFLUX DISEASE
     Route: 048
  2. CYMBALTA [Concomitant]
     Indication: DEPRESSION
  3. TRAZEDONE [Concomitant]
  4. VITAMIN D [Concomitant]
  5. CITRACAL [Concomitant]

REACTIONS (2)
  - OSTEOPOROSIS [None]
  - SURGERY [None]
